FAERS Safety Report 5764035-9 (Version None)
Quarter: 2008Q2

REPORT INFORMATION
  Report Type: 
  Country: None (occurrence: None)
  Receive Date: 20080609
  Receipt Date: 20080506
  Transmission Date: 20081010
  Serious: No
  Sender: FDA-Public Use
  Company Number: 002#1#2008-00410

PATIENT
  Sex: Male

DRUGS (4)
  1. NEUPRO [Suspect]
     Indication: DRUG USE FOR UNKNOWN INDICATION
     Dosage: 4MG/24H, 1 IN 1 D, TRANSDERMAL
     Route: 062
     Dates: start: 20080503
  2. SINEMET [Concomitant]
  3. COMTAN [Concomitant]
  4. ZELAPAR [Concomitant]

REACTIONS (1)
  - DYSKINESIA [None]
